FAERS Safety Report 5329815-2 (Version None)
Quarter: 2007Q2

REPORT INFORMATION
  Report Type: 
  Country: None (occurrence: None)
  Receive Date: 20070517
  Receipt Date: 20070517
  Transmission Date: 20071010
  Serious: Yes (Hospitalization)
  Sender: FDA-Public Use
  Company Number: None

PATIENT
  Age: 51 Year
  Sex: Female
  Weight: 45.8133 kg

DRUGS (1)
  1. OXANDROLONE [Suspect]
     Indication: WEIGHT INCREASED
     Dosage: 10 MG BID ORAL
     Route: 048
     Dates: start: 20070411, end: 20070507

REACTIONS (6)
  - DEHYDRATION [None]
  - DRUG TOXICITY [None]
  - FEBRILE NEUTROPENIA [None]
  - HAEMOGLOBIN ABNORMAL [None]
  - PLATELET COUNT ABNORMAL [None]
  - WHITE BLOOD CELL DISORDER [None]
